FAERS Safety Report 6175774-2 (Version None)
Quarter: 2009Q2

REPORT INFORMATION
  Report Type: 
  Country: None (occurrence: None)
  Receive Date: 20090501
  Receipt Date: 20090420
  Transmission Date: 20091009
  Serious: Yes (Hospitalization, Other)
  Sender: FDA-Public Use
  Company Number: US-BAYER-200821416NA

PATIENT
  Age: 74 Year
  Sex: Female
  Weight: 44 kg

DRUGS (30)
  1. SORAFENIB [Suspect]
     Indication: NON-SMALL CELL LUNG CANCER
     Dosage: TOTAL DAILY DOSE: 800 MG  UNIT DOSE: 200 MG
     Route: 048
     Dates: start: 20080425
  2. SORAFENIB [Suspect]
     Dosage: TOTAL DAILY DOSE: 800 MG  UNIT DOSE: 200 MG
     Route: 048
     Dates: start: 20080220
  3. SORAFENIB [Suspect]
     Dosage: TOTAL DAILY DOSE: 400 MG  UNIT DOSE: 200 MG
     Route: 048
     Dates: start: 20080802, end: 20080817
  4. BEVACIZUMAB [Suspect]
     Indication: NON-SMALL CELL LUNG CANCER
     Dosage: UNIT DOSE: 2.5 MG/KG
     Route: 042
     Dates: start: 20080424, end: 20080424
  5. BEVACIZUMAB [Suspect]
     Dosage: DAY 1/Q 21 DAYS
     Route: 042
     Dates: start: 20080218, end: 20080218
  6. BEVACIZUMAB [Suspect]
     Dosage: DAY 1/Q 21 DAYS
     Route: 042
     Dates: start: 20080801, end: 20080801
  7. CARBOPLATIN [Suspect]
     Indication: NON-SMALL CELL LUNG CANCER
     Dosage: 6.0 AUC      DAY 1/Q 21 DAYS
     Route: 042
     Dates: start: 20080218, end: 20080218
  8. CARBOPLATIN [Suspect]
     Dosage: 6.0 AUC     9.2ML/MIN; 50ML VOLUME
     Route: 042
     Dates: start: 20080424, end: 20080424
  9. PACLITAXEL [Suspect]
     Indication: NON-SMALL CELL LUNG CANCER
     Dosage: UNIT DOSE: 200 MG/M2
     Route: 042
     Dates: start: 20080424, end: 20080424
  10. PACLITAXEL [Suspect]
     Dosage: DAY 1/Q 21 DAYS
     Route: 042
     Dates: start: 20080218, end: 20080218
  11. I-CAPS [Concomitant]
     Indication: MACULAR DEGENERATION
     Dosage: TOTAL DAILY DOSE: 4 DF
     Route: 048
     Dates: start: 20070101
  12. AMLODIPINE [Concomitant]
     Indication: HYPERTENSION
     Dosage: TOTAL DAILY DOSE: 10 MG
     Route: 048
     Dates: start: 20071001
  13. LISINOPRIL [Concomitant]
     Indication: HYPERTENSION
     Dosage: TOTAL DAILY DOSE: 20 MG
     Route: 048
     Dates: start: 20080606
  14. LISINOPRIL [Concomitant]
     Dosage: TOTAL DAILY DOSE: 10 MG
     Route: 048
     Dates: start: 19960101, end: 20080606
  15. TRAVATAN [Concomitant]
     Indication: GLAUCOMA
     Dosage: TOTAL DAILY DOSE: 2 GTT
     Route: 047
     Dates: start: 20050101
  16. ASCORBIC ACID [Concomitant]
     Indication: VITAMIN SUPPLEMENTATION
     Dosage: TOTAL DAILY DOSE: 2000 MG
     Route: 048
     Dates: start: 20080201
  17. COENZYME Q10 [Concomitant]
     Indication: MEDICAL DIET
     Dosage: TOTAL DAILY DOSE: 50 MG
     Route: 048
     Dates: start: 20020101
  18. COMPAZINE [Concomitant]
     Indication: NAUSEA
     Route: 048
     Dates: start: 20080218
  19. IBUPROFEN [Concomitant]
     Indication: PAIN IN EXTREMITY
     Dosage: 2 TABS/PRN
     Route: 048
     Dates: start: 20080301
  20. NEULASTA [Concomitant]
     Indication: WHITE BLOOD CELL COUNT DECREASED
     Dosage: TOTAL DAILY DOSE: 6 MG
     Route: 058
     Dates: start: 20080405, end: 20080405
  21. NEULASTA [Concomitant]
     Dosage: TOTAL DAILY DOSE: 6 MG
     Route: 058
     Dates: start: 20080425, end: 20080425
  22. NEULASTA [Concomitant]
     Dosage: TOTAL DAILY DOSE: 6 MG
     Route: 058
     Dates: start: 20080802, end: 20080802
  23. SILVER NITRATE [Concomitant]
     Indication: EPISTAXIS
     Route: 061
     Dates: start: 20080427, end: 20080427
  24. ONDANSETRON [Concomitant]
     Indication: PREMEDICATION
     Dosage: TOTAL DAILY DOSE: 8 MG
     Route: 042
     Dates: start: 20080424, end: 20080424
  25. DEXAMETHASONE 4MG TAB [Concomitant]
     Indication: PREMEDICATION
     Dosage: TOTAL DAILY DOSE: 20 MG
     Route: 042
     Dates: start: 20080424, end: 20080424
  26. DIPHENHYDRAMINE HCL [Concomitant]
     Indication: PREMEDICATION
     Dosage: TOTAL DAILY DOSE: 50 MG
     Route: 042
     Dates: start: 20080424, end: 20080424
  27. FAMOTIDINE [Concomitant]
     Indication: PREMEDICATION
     Dosage: TOTAL DAILY DOSE: 20 MG
     Route: 042
     Dates: start: 20080424, end: 20080424
  28. ALBUTEROL [Concomitant]
     Dosage: INHALER
  29. GLUCOSAMINE CHONDROITIN [Concomitant]
  30. SELENIUM [Concomitant]
     Indication: MEDICAL DIET
     Dosage: TOTAL DAILY DOSE: 100 ?G
     Route: 048
     Dates: start: 20080518

REACTIONS (3)
  - DIZZINESS [None]
  - DRUG HYPERSENSITIVITY [None]
  - PLATELET COUNT DECREASED [None]
